FAERS Safety Report 20875768 (Version 1)
Quarter: 2022Q2

REPORT INFORMATION
  Report Type: Report from Study
  Country: US (occurrence: US)
  Receive Date: 20220526
  Receipt Date: 20220526
  Transmission Date: 20220720
  Serious: Yes (Other)
  Sender: FDA-Public Use
  Company Number: US-BRISTOL-MYERS SQUIBB COMPANY-2022-027611

PATIENT
  Age: 39 Year
  Sex: Female
  Weight: 99.7 kg

DRUGS (1)
  1. REVLIMID [Suspect]
     Active Substance: LENALIDOMIDE
     Indication: Plasma cell myeloma
     Dosage: DAILY 14 DAYS
     Route: 048

REACTIONS (3)
  - Rash pruritic [Unknown]
  - Cancer pain [Unknown]
  - Stem cell transplant [Unknown]
